FAERS Safety Report 20160285 (Version 2)
Quarter: 2021Q4

REPORT INFORMATION
  Report Type: Spontaneous
  Country: FR (occurrence: FR)
  Receive Date: 20211208
  Receipt Date: 20211217
  Transmission Date: 20220303
  Serious: Yes (Death, Other)
  Sender: FDA-Public Use
  Company Number: FR-PFIZER INC-202101374274

PATIENT
  Age: 80 Year
  Sex: Female

DRUGS (2)
  1. ACETAMINOPHEN [Suspect]
     Active Substance: ACETAMINOPHEN
     Indication: Product used for unknown indication
     Dosage: 8 MILLIGRAM (8 MG PER LITER)
     Route: 065
  2. ELIQUIS [Concomitant]
     Active Substance: APIXABAN
     Dosage: UNK

REACTIONS (5)
  - Hepatic failure [Fatal]
  - Overdose [Fatal]
  - Syncope [Unknown]
  - Pulmonary embolism [Unknown]
  - Atrial fibrillation [Unknown]
